FAERS Safety Report 4308195-5 (Version None)
Quarter: 2004Q1

REPORT INFORMATION
  Report Type: 
  Country: None (occurrence: None)
  Receive Date: 20040301
  Receipt Date: 20030813
  Transmission Date: 20041129
  Serious: No
  Sender: FDA-Public Use
  Company Number: US-BRISTOL-MYERS SQUIBB COMPANY-12354841

PATIENT
  Age: 61 Year
  Sex: Male
  Weight: 79 kg

DRUGS (6)
  1. GLUCOPHAGE [Suspect]
     Indication: DIABETES MELLITUS
     Route: 048
  2. GLYBURIDE [Concomitant]
  3. VASOTEC [Concomitant]
  4. PRAVACHOL [Concomitant]
  5. TENORMIN [Concomitant]
  6. ASPIRIN [Concomitant]

REACTIONS (1)
  - HALITOSIS [None]
